FAERS Safety Report 5100998-2 (Version None)
Quarter: 2006Q3

REPORT INFORMATION
  Report Type: 
  Country: None (occurrence: None)
  Receive Date: 20060911
  Receipt Date: 20060829
  Transmission Date: 20061208
  Serious: Yes (Other)
  Sender: FDA-Public Use
  Company Number: IT-BRISTOL-MYERS SQUIBB COMPANY-13492566

PATIENT

DRUGS (1)
  1. HYDROXYUREA [Suspect]
     Indication: MYELOPROLIFERATIVE DISORDER

REACTIONS (8)
  - ACUTE LEUKAEMIA [None]
  - ANAEMIA [None]
  - MEAN CELL VOLUME INCREASED [None]
  - MULTIPLE ALLERGIES [None]
  - NAIL PIGMENTATION [None]
  - PANCREATIC CARCINOMA [None]
  - PYREXIA [None]
  - SKIN ULCER [None]
